FAERS Safety Report 16219085 (Version 1)
Quarter: 2019Q2

REPORT INFORMATION
  Report Type: Spontaneous
  Country: JP (occurrence: JP)
  Receive Date: 20190419
  Receipt Date: 20190419
  Transmission Date: 20190711
  Serious: Yes (Other)
  Sender: FDA-Public Use
  Company Number: JP-ANIPHARMA-2019-JP-000085

PATIENT
  Age: 90 Year
  Sex: Male

DRUGS (3)
  1. ZOLADEX LA [Suspect]
     Active Substance: GOSERELIN ACETATE
     Dosage: 10.8 MG ONCE EVERY 12 WEEKS
     Route: 058
     Dates: start: 201904, end: 201904
  2. CASODEX [Suspect]
     Active Substance: BICALUTAMIDE
     Indication: PROSTATE CANCER
     Dosage: 80 MG DAILY
     Route: 048
  3. UNSPECIFIED [Suspect]
     Active Substance: UNSPECIFIED INGREDIENT
     Dosage: UNK
     Route: 042
     Dates: start: 201904, end: 201904

REACTIONS (2)
  - Anaphylactic shock [Unknown]
  - Rash [Unknown]

NARRATIVE: CASE EVENT DATE: 201904
